FAERS Safety Report 6559074-4 (Version None)
Quarter: 2010Q1

REPORT INFORMATION
  Report Type: 
  Country: None (occurrence: None)
  Receive Date: 20100129
  Receipt Date: 20091207
  Transmission Date: 20100710
  Serious: Yes (Other)
  Sender: FDA-Public Use
  Company Number: FR-SANOFI-AVENTIS-2009SA011324

PATIENT
  Age: 70 Year

DRUGS (6)
  1. OXALIPLATIN [Suspect]
     Indication: COLON CANCER
     Route: 042
     Dates: start: 20070313, end: 20070313
  2. OXALIPLATIN [Suspect]
     Route: 042
     Dates: start: 20070515, end: 20070515
  3. FLUOROURACIL [Suspect]
     Indication: COLON CANCER
     Route: 042
     Dates: start: 20070313, end: 20070313
  4. FLUOROURACIL [Suspect]
     Route: 042
     Dates: start: 20070626, end: 20070626
  5. FOLINIC ACID [Suspect]
     Indication: COLON CANCER
     Route: 042
     Dates: start: 20070313, end: 20070313
  6. FOLINIC ACID [Suspect]
     Route: 042
     Dates: start: 20070626, end: 20070626

REACTIONS (3)
  - BALANCE DISORDER [None]
  - CEREBELLAR SYNDROME [None]
  - DYSARTHRIA [None]
